FAERS Safety Report 19504501 (Version 4)
Quarter: 2021Q3

REPORT INFORMATION
  Report Type: Report from Study
  Country: GB (occurrence: GB)
  Receive Date: 20210708
  Receipt Date: 20210826
  Transmission Date: 20211014
  Serious: Yes (Other)
  Sender: FDA-Public Use
  Company Number: GB-CELLTRION INC.-2021GB008965

PATIENT

DRUGS (14)
  1. DOCETAXEL. [Suspect]
     Active Substance: DOCETAXEL
     Dosage: 140 MG, Q3 WEEKS
     Route: 042
     Dates: start: 20160310
  2. DEXAMETHASONE. [Concomitant]
     Active Substance: DEXAMETHASONE
     Dosage: 8 MG, BID
     Route: 048
     Dates: start: 20160103, end: 20160105
  3. DEXAMETHASONE. [Concomitant]
     Active Substance: DEXAMETHASONE
     Dosage: 8 MG, BID
     Route: 048
     Dates: start: 20160127, end: 20160129
  4. DENOSUMAB [Suspect]
     Active Substance: DENOSUMAB
     Indication: BREAST CANCER METASTATIC
     Dosage: 120MG
     Route: 058
     Dates: start: 20151201
  5. LETROZOLE. [Suspect]
     Active Substance: LETROZOLE
     Indication: BREAST CANCER METASTATIC
     Dosage: 2.5 UG,QD
     Route: 048
     Dates: start: 20160329
  6. TRASTUZUMAB (UNKNOWN) [Suspect]
     Active Substance: TRASTUZUMAB
     Dosage: 400 MG, Q3 WEEKS
     Route: 042
     Dates: start: 20160825
  7. TRASTUZUMAB (UNKNOWN) [Suspect]
     Active Substance: TRASTUZUMAB
     Dosage: 450 MG, TIW Q3 WEEKS
     Route: 042
     Dates: start: 20160310
  8. LANSOPRAZOLE. [Concomitant]
     Active Substance: LANSOPRAZOLE
     Dosage: 30 MG,QD
     Route: 048
     Dates: start: 20151229
  9. TRASTUZUMAB (UNKNOWN) [Suspect]
     Active Substance: TRASTUZUMAB
     Indication: BREAST CANCER METASTATIC
     Dosage: 675 MG, Q3 WEEKS
     Route: 042
     Dates: start: 20160104, end: 20160128
  10. PERTUZUMAB. [Suspect]
     Active Substance: PERTUZUMAB
     Dosage: 420 MG, Q3 WEEKS
     Route: 042
     Dates: start: 20160218
  11. DOCETAXEL. [Suspect]
     Active Substance: DOCETAXEL
     Indication: BREAST CANCER METASTATIC
     Dosage: 148 MG, Q3 WEEKS
     Route: 042
     Dates: start: 20160105, end: 20160218
  12. CALCICHEW D3 FORTE [Concomitant]
     Active Substance: CALCIUM\CHOLECALCIFEROL
     Dosage: 1 TABLET (FREQUENCY: 0.5 DAY)
     Route: 048
     Dates: start: 20160101
  13. TRASTUZUMAB (UNKNOWN) [Suspect]
     Active Substance: TRASTUZUMAB
     Dosage: 525 MG, Q3 WEEKS
     Route: 042
     Dates: start: 20160128, end: 20160218
  14. PERTUZUMAB. [Suspect]
     Active Substance: PERTUZUMAB
     Indication: BREAST CANCER METASTATIC
     Dosage: 840 MG, Q3 WEEKS
     Route: 042
     Dates: start: 20160104, end: 20160128

REACTIONS (9)
  - Diarrhoea [Not Recovered/Not Resolved]
  - Fatigue [Recovered/Resolved]
  - Arthralgia [Not Recovered/Not Resolved]
  - Ejection fraction decreased [Recovered/Resolved]
  - Nausea [Recovered/Resolved]
  - Rash [Recovered/Resolved]
  - Neuropathy peripheral [Recovered/Resolved]
  - Hypomagnesaemia [Recovered/Resolved]
  - Onychalgia [Recovered/Resolved]

NARRATIVE: CASE EVENT DATE: 201601
